FAERS Safety Report 21673243 (Version 1)
Quarter: 2022Q4

REPORT INFORMATION
  Report Type: Other
  Country: US (occurrence: None)
  Receive Date: 20221202
  Receipt Date: 20221202
  Transmission Date: 20230113
  Serious: Yes (Other)
  Sender: FDA-Public Use
  Company Number: US-ROCHE-3227595

PATIENT
  Age: 58 Year
  Sex: Female

DRUGS (4)
  1. BEVACIZUMAB [Suspect]
     Active Substance: BEVACIZUMAB
     Indication: Endometrial cancer
     Dosage: 15MG/KG/3 WEEKS FOR 10 MONTHS.
     Route: 065
  2. PREDNISONE [Concomitant]
     Active Substance: PREDNISONE
     Dosage: TAPERED IN 3 MONTHS WITH IMPROVEMENT IN CR, PROTEINURIA AND REMAINED STABLE DESPITE SWITCHING TO PEM
     Route: 065
  3. PEMBROLIZUMAB [Concomitant]
     Active Substance: PEMBROLIZUMAB
     Route: 065
  4. LENVATINIB [Concomitant]
     Active Substance: LENVATINIB
     Route: 065

REACTIONS (1)
  - Glomerulonephritis membranoproliferative [Unknown]
